FAERS Safety Report 10607967 (Version 1)
Quarter: 2014Q4

REPORT INFORMATION
  Report Type: Spontaneous
  Country: US (occurrence: US)
  Receive Date: 20141125
  Receipt Date: 20141125
  Transmission Date: 20150529
  Serious: No
  Sender: FDA-Public Use
  Company Number: US-BRISTOL-MYERS SQUIBB COMPANY-21339304

PATIENT
  Age: 69 Year
  Sex: Female
  Weight: 95.24 kg

DRUGS (1)
  1. FARXIGA [Suspect]
     Active Substance: DAPAGLIFLOZIN PROPANEDIOL
     Indication: TYPE 2 DIABETES MELLITUS

REACTIONS (8)
  - Somnolence [Unknown]
  - Hunger [Unknown]
  - Weight increased [Unknown]
  - Genital rash [Unknown]
  - Dry mouth [Unknown]
  - Fungal infection [Unknown]
  - Increased appetite [Unknown]
  - Glycosylated haemoglobin increased [Unknown]
